FAERS Safety Report 17535133 (Version 1)
Quarter: 2020Q1

REPORT INFORMATION
  Report Type: Spontaneous
  Country: US (occurrence: US)
  Receive Date: 20200312
  Receipt Date: 20200312
  Transmission Date: 20200409
  Serious: Yes (Hospitalization, Other)
  Sender: FDA-Public Use
  Company Number: US-B.I. PHARMACEUTICALS,INC./RIDGEFIELD-2020-US-013305

PATIENT
  Age: 70 Year
  Sex: Male

DRUGS (2)
  1. MIRAPEX ER [Suspect]
     Active Substance: PRAMIPEXOLE DIHYDROCHLORIDE
     Indication: RESTLESS LEGS SYNDROME
     Dosage: 1.5MG 1 TABLET DAILY
     Route: 065
     Dates: start: 201912
  2. MIRAPEX [Suspect]
     Active Substance: PRAMIPEXOLE DIHYDROCHLORIDE
     Indication: RESTLESS LEGS SYNDROME
     Route: 065
     Dates: end: 201912

REACTIONS (2)
  - Off label use [Unknown]
  - Prostate cancer [Unknown]

NARRATIVE: CASE EVENT DATE: 201912
